FAERS Safety Report 10490058 (Version 1)
Quarter: 2014Q4

REPORT INFORMATION
  Report Type: Spontaneous
  Country: BE (occurrence: BE)
  Receive Date: 20141002
  Receipt Date: 20141002
  Transmission Date: 20150528
  Serious: Yes (Disabling)
  Sender: FDA-Public Use
  Company Number: BE-MYLANLABS-2014M1005522

PATIENT

DRUGS (1)
  1. CIPROFLOXACINE MYLAN 500 MG [Suspect]
     Active Substance: CIPROFLOXACIN
     Indication: URINARY TRACT INFECTION
     Dosage: 500 MG, BID
     Route: 048
     Dates: start: 20140811, end: 20140815

REACTIONS (11)
  - Affect lability [Recovering/Resolving]
  - Confusional state [Recovering/Resolving]
  - Activities of daily living impaired [None]
  - Depression [Recovering/Resolving]
  - Impaired work ability [None]
  - Eating disorder [Recovering/Resolving]
  - Anxiety [Recovering/Resolving]
  - Panic attack [Recovering/Resolving]
  - Suicidal ideation [Recovering/Resolving]
  - Depersonalisation [Recovering/Resolving]
  - Decreased appetite [Recovering/Resolving]

NARRATIVE: CASE EVENT DATE: 20140812
